FAERS Safety Report 25509214 (Version 1)
Quarter: 2025Q3

REPORT INFORMATION
  Report Type: Spontaneous
  Country: US (occurrence: None)
  Receive Date: 20250702
  Receipt Date: 20250702
  Transmission Date: 20251020
  Serious: No
  Sender: FDA-CTU
  Company Number: None

PATIENT
  Age: 65 Year
  Sex: Male

DRUGS (1)
  1. DUPIXENT [Suspect]
     Active Substance: DUPILUMAB
     Indication: Asthma
     Route: 058
     Dates: start: 20250521, end: 20250614

REACTIONS (4)
  - Arthritis [None]
  - Diplegia [None]
  - Erythema [None]
  - Adverse drug reaction [None]

NARRATIVE: CASE EVENT DATE: 20250614
